FAERS Safety Report 4955872-9 (Version None)
Quarter: 2006Q1

REPORT INFORMATION
  Report Type: 
  Country: None (occurrence: None)
  Receive Date: 20060327
  Receipt Date: 20060327
  Transmission Date: 20060701
  Serious: Yes (Other)
  Sender: FDA-Public Use
  Company Number: None

PATIENT
  Sex: Male
  Weight: 79.3341 kg

DRUGS (8)
  1. LORATADINE [Suspect]
     Indication: RHINITIS ALLERGIC
     Dosage: 1 TAB DAILY
     Dates: start: 20040425, end: 20051219
  2. CEFUROXIME [Concomitant]
  3. CHLORPHENIRAMINE MALEATE [Concomitant]
  4. DOXYCYCLINE [Concomitant]
  5. FLUNISOLIDE [Concomitant]
  6. NAPROXEN [Concomitant]
  7. PSEUDOEPHHEDRINE [Concomitant]
  8. SILDENAFIL [Concomitant]

REACTIONS (2)
  - DISTURBANCE IN ATTENTION [None]
  - SOMNOLENCE [None]
